FAERS Safety Report 12648055 (Version 1)
Quarter: 2016Q3

REPORT INFORMATION
  Report Type: Spontaneous
  Country: US (occurrence: None)
  Receive Date: 20160811
  Receipt Date: 20160811
  Transmission Date: 20161109
  Serious: Yes (Death)
  Sender: FDA-Public Use
  Company Number: None

PATIENT
  Age: 75 Year
  Sex: Male

DRUGS (2)
  1. TEMOZOLOMIDE 5MG SANDOZ INC [Suspect]
     Active Substance: TEMOZOLOMIDE
     Indication: BRAIN NEOPLASM MALIGNANT
     Dosage: TWO-5MG CAPSULES DAILY AT BEDTIME FOR PO
     Route: 048
     Dates: start: 20160603
  2. TEMOZOLOMIDE 140MG SANDOZ INC [Suspect]
     Active Substance: TEMOZOLOMIDE
     Indication: BRAIN NEOPLASM MALIGNANT
     Dosage: 140MG DAILY AT BEDTIME FOR PO
     Route: 048
     Dates: start: 20160603

REACTIONS (4)
  - Malaise [None]
  - Diarrhoea [None]
  - Immunodeficiency [None]
  - Dehydration [None]
